FAERS Safety Report 8276950-5 (Version None)
Quarter: 2012Q2

REPORT INFORMATION
  Report Type: 
  Country: None (occurrence: None)
  Receive Date: 20120412
  Receipt Date: 20120403
  Transmission Date: 20120825
  Serious: Yes (Other)
  Sender: FDA-Public Use
  Company Number: US-ASTRAZENECA-2010SE16988

PATIENT
  Age: 71 Year
  Sex: Female

DRUGS (3)
  1. SYMBICORT [Suspect]
     Route: 055
  2. PULMICORT [Suspect]
     Route: 055
  3. NEXIUM [Suspect]
     Route: 048

REACTIONS (6)
  - SINUS DISORDER [None]
  - DRUG NAME CONFUSION [None]
  - ADVERSE REACTION [None]
  - MALAISE [None]
  - INTENTIONAL DRUG MISUSE [None]
  - BLINDNESS UNILATERAL [None]
